FAERS Safety Report 24103861 (Version 2)
Quarter: 2024Q3

REPORT INFORMATION
  Report Type: Spontaneous
  Country: GB (occurrence: GB)
  Receive Date: 20240717
  Receipt Date: 20240730
  Transmission Date: 20241017
  Serious: Yes (Hospitalization)
  Sender: MYLAN
  Company Number: GB-BAXTER-2024BAX010373

PATIENT
  Age: 38 Year
  Sex: Female

DRUGS (31)
  1. TOBRAMYCIN [Suspect]
     Active Substance: TOBRAMYCIN\TOBRAMYCIN SULFATE
     Indication: Product used for unknown indication
     Dosage: 340 MILLIGRAM, QD (340 MG ONCE A DAY, AS A DUAL THERAPY ALONGSIDE FOSFOMYCIN)
     Route: 042
  2. DEXTROSE [Suspect]
     Active Substance: DEXTROSE\DEXTROSE MONOHYDRATE
     Indication: Medication dilution
     Dosage: 250 MILLILITER, TID (250 ML THRICE A DAY)
     Route: 042
  3. DEXTROSE [Suspect]
     Active Substance: DEXTROSE\DEXTROSE MONOHYDRATE
     Dosage: 250 MILLILITER, TID (250 ML THRICE A DAY)
     Route: 042
  4. DEXTROSE [Suspect]
     Active Substance: DEXTROSE\DEXTROSE MONOHYDRATE
     Dosage: 250 MILLILITER, TID (250 ML THRICE A DAY)
     Route: 042
  5. DEXTROSE [Suspect]
     Active Substance: DEXTROSE\DEXTROSE MONOHYDRATE
     Dosage: 250 MILLILITER, TID (250 ML THRICE A DAY)
     Route: 042
  6. DEXTROSE [Suspect]
     Active Substance: DEXTROSE\DEXTROSE MONOHYDRATE
     Dosage: 250 MILLILITER, TID (250 ML THRICE A DAY)
     Route: 042
  7. DEXTROSE [Suspect]
     Active Substance: DEXTROSE\DEXTROSE MONOHYDRATE
     Dosage: 250 MILLILITER, TID (250 ML THRICE A DAY)
     Route: 042
  8. DEXTROSE [Suspect]
     Active Substance: DEXTROSE\DEXTROSE MONOHYDRATE
     Dosage: 250 MILLILITER, TID (250 ML THRICE A DAY)
     Route: 042
  9. DEXTROSE [Suspect]
     Active Substance: DEXTROSE\DEXTROSE MONOHYDRATE
     Dosage: 250 MILLILITER, TID (250 ML THRICE A DAY)
     Route: 042
  10. DEXTROSE [Suspect]
     Active Substance: DEXTROSE\DEXTROSE MONOHYDRATE
     Dosage: 250 MILLILITER, TID (250 ML THRICE A DAY)
     Route: 042
  11. FOSFOMYCIN [Suspect]
     Active Substance: FOSFOMYCIN
     Indication: Cystic fibrosis
     Dosage: 4 GRAM, TID (4 G THRICE A DAY)
     Route: 042
     Dates: start: 20231130
  12. FOSFOMYCIN [Suspect]
     Active Substance: FOSFOMYCIN
     Indication: Condition aggravated
     Dosage: 2000 MILLIGRAM, TID (2000 MG THRICE A DAY, AS A DUAL THERAPY ALONGSIDE 340 MG TOBRAMYCIN AND 2 MU CO
     Route: 042
  13. FOSFOMYCIN [Suspect]
     Active Substance: FOSFOMYCIN
     Indication: Infection
     Dosage: 2000 MILLIGRAM, TID (2000 MG THRICE A DAY, AS A DUAL THERAPY ALONGSIDE 2 MU COLOMYCIN)
     Route: 042
  14. FOSFOMYCIN [Suspect]
     Active Substance: FOSFOMYCIN
     Dosage: 2000 MILLIGRAM, TID (2000 MG THRICE A DAY, AS A DUAL THERAPY ALONGSIDE 340 MG TOBRAMYCIN AND 2 MU CO
     Route: 042
  15. FOSFOMYCIN [Suspect]
     Active Substance: FOSFOMYCIN
     Dosage: 2000 MILLIGRAM, TID (2000 MG THRICE A DAY, AS A DUAL THERAPY ALONGSIDE 2 MU COLOMYCIN)
     Route: 042
  16. FOSFOMYCIN [Suspect]
     Active Substance: FOSFOMYCIN
     Dosage: 2000 MILLIGRAM, TID (2000 MG THRICE A DAY, AS A DUAL THERAPY ALONGSIDE 340 MG TOBRAMYCIN AND 2 MU CO
     Route: 042
  17. FOSFOMYCIN [Suspect]
     Active Substance: FOSFOMYCIN
     Dosage: 2000 MILLIGRAM, TID (2000 MG THRICE A DAY, AS A DUAL THERAPY ALONGSIDE 2 MU COLOMYCI)
     Route: 042
  18. FOSFOMYCIN [Suspect]
     Active Substance: FOSFOMYCIN
     Dosage: 2000 MILLIGRAM, TID (2000 MG THRICE A DAY, AS A DUAL THERAPY ALONGSIDE 2 MU COLOMYCIN)
     Route: 042
  19. FOSFOMYCIN [Suspect]
     Active Substance: FOSFOMYCIN
     Dosage: 2000 MILLIGRAM, TID (2000 MG THRICE A DAY, AS A DUAL THERAPY ALONGSIDE 340 MG TOBRAMYCIN AND 2 MU CO
     Route: 042
  20. FOSFOMYCIN [Suspect]
     Active Substance: FOSFOMYCIN
     Dosage: 2000 MILLIGRAM, TID (2000 MG THRICE A DAY, AS A DUAL THERAPY ALONGSIDE 2 MU COLOMYCIN)
     Route: 042
  21. FOSFOMYCIN [Suspect]
     Active Substance: FOSFOMYCIN
     Dosage: 10 UNITS
     Route: 065
     Dates: start: 20231206
  22. FOSFOMYCIN [Suspect]
     Active Substance: FOSFOMYCIN
     Dosage: 7 UNITS
     Route: 065
     Dates: start: 20231207
  23. FOSFOMYCIN [Suspect]
     Active Substance: FOSFOMYCIN
     Dosage: 7 UNITS
     Route: 065
     Dates: start: 20231207
  24. FOSFOMYCIN [Suspect]
     Active Substance: FOSFOMYCIN
     Dosage: 7 UNITS
     Route: 065
     Dates: start: 20231219
  25. FOSFOMYCIN [Suspect]
     Active Substance: FOSFOMYCIN
     Dosage: 9 UNITS
     Route: 065
     Dates: start: 20231220
  26. FOSFOMYCIN [Suspect]
     Active Substance: FOSFOMYCIN
     Dosage: 9 UNITS
     Route: 065
     Dates: start: 20231220
  27. FOSFOMYCIN [Suspect]
     Active Substance: FOSFOMYCIN
     Dosage: 7 UNITS
     Route: 065
     Dates: start: 20231227
  28. FOSFOMYCIN [Suspect]
     Active Substance: FOSFOMYCIN
     Dosage: 7 UNITS
     Route: 065
     Dates: start: 20231227
  29. COLISTIMETHATE SODIUM [Suspect]
     Active Substance: COLISTIMETHATE SODIUM
     Indication: Cystic fibrosis
     Dosage: 2 MILLION INTERNATIONAL UNIT, TID (2 MU THRICE A DAY, AS A DUAL THERAPY ALONGSIDE FOSFOMYCIN FOR 13
     Route: 042
  30. COLISTIMETHATE SODIUM [Suspect]
     Active Substance: COLISTIMETHATE SODIUM
     Indication: Infection
     Dosage: 2 MILLION INTERNATIONAL UNIT, TID (2 MU THRICE A DAY)
     Route: 042
     Dates: start: 20231130
  31. COLISTIMETHATE SODIUM [Suspect]
     Active Substance: COLISTIMETHATE SODIUM
     Indication: Condition aggravated
     Dosage: 2 MILLION INTERNATIONAL UNIT, TID (2 MU THRICE A DAY FOR 8 DAY)
     Route: 042

REACTIONS (8)
  - General physical health deterioration [Unknown]
  - Malaise [Unknown]
  - Product preparation error [Unknown]
  - Underdose [Unknown]
  - Product dispensing error [Unknown]
  - Product appearance confusion [Unknown]
  - Product strength confusion [Unknown]
  - Manufacturing laboratory analytical testing issue [Unknown]
